FAERS Safety Report 15337817 (Version 1)
Quarter: 2018Q3

REPORT INFORMATION
  Report Type: Spontaneous
  Country: ZA (occurrence: ZA)
  Receive Date: 20180831
  Receipt Date: 20180831
  Transmission Date: 20181010
  Serious: Yes (Other)
  Sender: FDA-Public Use
  Company Number: ZA-009507513-1510ZAF015311

PATIENT
  Sex: Female

DRUGS (2)
  1. EFAVIRENZ. [Suspect]
     Active Substance: EFAVIRENZ
     Indication: ANTIRETROVIRAL THERAPY
     Dosage: UNK
     Route: 065
  2. IMPLANON [Suspect]
     Active Substance: ETONOGESTREL
     Indication: PRODUCT USED FOR UNKNOWN INDICATION
     Dosage: UNKNOWN
     Route: 065
     Dates: start: 201403

REACTIONS (3)
  - Off label use [Unknown]
  - Pregnancy with implant contraceptive [Unknown]
  - Maternal exposure during pregnancy [Unknown]
